FAERS Safety Report 11592628 (Version 1)
Quarter: 2015Q4

REPORT INFORMATION
  Report Type: Spontaneous
  Country: US (occurrence: US)
  Receive Date: 20151005
  Receipt Date: 20151005
  Transmission Date: 20160304
  Serious: Yes (Death, Other)
  Sender: FDA-Public Use
  Company Number: US-MUNDIPHARMA DS AND PHARMACOVIGILANCE-USA-2015-0126470

PATIENT
  Age: 32 Year
  Sex: Male

DRUGS (4)
  1. METHADONE [Suspect]
     Active Substance: METHADONE HYDROCHLORIDE
     Indication: DEPENDENCE
     Route: 048
  2. OXYCODONE HCL CR TABLETS (SIMILAR TO NDA 22-272) [Suspect]
     Active Substance: OXYCODONE HYDROCHLORIDE
     Indication: PAIN
     Route: 048
  3. KLONOPIN [Suspect]
     Active Substance: CLONAZEPAM
     Indication: ANXIETY
     Route: 048
  4. XANAX [Suspect]
     Active Substance: ALPRAZOLAM
     Indication: ANXIETY
     Route: 048

REACTIONS (15)
  - Seizure [Fatal]
  - Drug withdrawal syndrome [Fatal]
  - Hallucination [Unknown]
  - Weight decreased [Unknown]
  - Blepharospasm [Unknown]
  - Listless [Unknown]
  - Diarrhoea [Unknown]
  - Dehydration [Fatal]
  - Muscle twitching [Unknown]
  - Dyspnoea [Unknown]
  - Communication disorder [Unknown]
  - Muscle spasms [Unknown]
  - Hypernatraemia [Fatal]
  - Vomiting [Unknown]
  - Electrolyte imbalance [Fatal]

NARRATIVE: CASE EVENT DATE: 20140627
